FAERS Safety Report 21734638 (Version 7)
Quarter: 2023Q2

REPORT INFORMATION
  Report Type: Report from Study
  Country: CA (occurrence: CA)
  Receive Date: 20221215
  Receipt Date: 20230525
  Transmission Date: 20230721
  Serious: Yes (Other)
  Sender: FDA-Public Use
  Company Number: CA-002147023-NVSC2022CA286976

PATIENT
  Age: 71 Year
  Sex: Female

DRUGS (3)
  1. ERELZI [Suspect]
     Active Substance: ETANERCEPT-SZZS
     Indication: Rheumatoid arthritis
     Dosage: 50 MG
     Route: 058
     Dates: start: 20221127
  2. ERELZI [Suspect]
     Active Substance: ETANERCEPT-SZZS
     Dosage: 50 MG, QMO
     Route: 065
     Dates: start: 20221227
  3. METHOTREXATE [Suspect]
     Active Substance: METHOTREXATE
     Indication: Product used for unknown indication
     Dosage: UNK
     Route: 065

REACTIONS (9)
  - Hydronephrosis [Unknown]
  - Nephrolithiasis [Unknown]
  - Blood pressure systolic increased [Recovering/Resolving]
  - Heart rate increased [Unknown]
  - Aphthous ulcer [Unknown]
  - Oral mucosal eruption [Unknown]
  - Norovirus infection [Unknown]
  - Staphylococcal infection [Unknown]
  - Therapeutic product effect incomplete [Unknown]
